FAERS Safety Report 22660677 (Version 1)
Quarter: 2023Q2

REPORT INFORMATION
  Report Type: Report from Study
  Country: NL (occurrence: NL)
  Receive Date: 20230630
  Receipt Date: 20230630
  Transmission Date: 20230722
  Serious: Yes (Other)
  Sender: FDA-Public Use
  Company Number: NL-MYLANLABS-2021M1021723

PATIENT
  Sex: Male

DRUGS (1)
  1. GLATIRAMER ACETATE [Suspect]
     Active Substance: GLATIRAMER ACETATE
     Indication: Multiple sclerosis
     Dosage: 40 MILLIGRAM, 3XW (3 THREE TIMES WEEKLY)
     Route: 058

REACTIONS (6)
  - Multiple sclerosis [Not Recovered/Not Resolved]
  - Central nervous system lesion [Recovered/Resolved]
  - Balance disorder [Unknown]
  - Injection site discharge [Unknown]
  - Injection site bruising [Not Recovered/Not Resolved]
  - Underdose [Unknown]

NARRATIVE: CASE EVENT DATE: 20230626
